FAERS Safety Report 8210500-4 (Version None)
Quarter: 2012Q1

REPORT INFORMATION
  Report Type: 
  Country: None (occurrence: None)
  Receive Date: 20120314
  Receipt Date: 20110405
  Transmission Date: 20120608
  Serious: No
  Sender: FDA-Public Use
  Company Number: US-ASTRAZENECA-2011SE19187

PATIENT
  Sex: Male

DRUGS (1)
  1. TOPROL-XL [Suspect]
     Indication: ANXIETY
     Dosage: 12.5 MG DAILY
     Route: 048

REACTIONS (3)
  - FEELING JITTERY [None]
  - PALPITATIONS [None]
  - DRUG DOSE OMISSION [None]
